FAERS Safety Report 9890691 (Version 1)
Quarter: 2014Q1

REPORT INFORMATION
  Report Type: Spontaneous
  Country: ES (occurrence: ES)
  Receive Date: 20140212
  Receipt Date: 20140212
  Transmission Date: 20141002
  Serious: Yes (Congenital Anomaly)
  Sender: FDA-Public Use
  Company Number: ES-JNJFOC-20140202606

PATIENT
  Sex: 0

DRUGS (2)
  1. CONCERTA [Suspect]
     Indication: DISTURBANCE IN ATTENTION
     Route: 064
     Dates: start: 201310, end: 20140116
  2. OLANZAPINE [Suspect]
     Indication: BIPOLAR DISORDER
     Route: 064
     Dates: start: 201310, end: 20140116

REACTIONS (2)
  - Congenital multiplex arthrogryposis [Not Recovered/Not Resolved]
  - Foetal exposure during pregnancy [Unknown]
